FAERS Safety Report 5230328-7 (Version None)
Quarter: 2007Q1

REPORT INFORMATION
  Report Type: 
  Country: None (occurrence: None)
  Receive Date: 20070206
  Receipt Date: 20070124
  Transmission Date: 20070707
  Serious: Yes (Other)
  Sender: FDA-Public Use
  Company Number: GB-PFIZER INC-2007007388

PATIENT
  Sex: Male

DRUGS (1)
  1. EXUBERA [Suspect]
     Route: 055

REACTIONS (2)
  - BURNING SENSATION [None]
  - PALPITATIONS [None]
